FAERS Safety Report 5162912-3 (Version None)
Quarter: 2006Q4

REPORT INFORMATION
  Report Type: 
  Country: None (occurrence: None)
  Receive Date: 20061201
  Receipt Date: 20061110
  Transmission Date: 20070319
  Serious: Yes (Life-Threatening, Disabling)
  Sender: FDA-Public Use
  Company Number: US-MERCK-0611USA03545

PATIENT
  Age: 72 Year
  Sex: Male

DRUGS (6)
  1. ZETIA [Suspect]
     Indication: HYPERCHOLESTEROLAEMIA
     Route: 048
     Dates: start: 20060501
  2. PLAVIX [Concomitant]
     Route: 065
  3. REQUIP [Concomitant]
     Route: 065
  4. DARVOCET [Concomitant]
     Route: 065
  5. METFORMIN [Concomitant]
     Route: 065
  6. AVANDIA [Concomitant]
     Route: 065

REACTIONS (2)
  - HAEMOGLOBIN DECREASED [None]
  - SERUM FERRITIN DECREASED [None]
